FAERS Safety Report 15987715 (Version 2)
Quarter: 2019Q1

REPORT INFORMATION
  Report Type: Spontaneous
  Country: JP (occurrence: JP)
  Receive Date: 20190220
  Receipt Date: 20190222
  Transmission Date: 20190418
  Serious: Yes (Death)
  Sender: FDA-Public Use
  Company Number: JP-BAUSCH-BL-2019-005223

PATIENT
  Age: 80 Year
  Sex: Male

DRUGS (4)
  1. TARGRETIN [Suspect]
     Active Substance: BEXAROTENE
     Dosage: 2 WEEK ON, 2 WEEK OFF CYCLE
     Route: 048
     Dates: start: 201805, end: 2018
  2. TARGRETIN [Suspect]
     Active Substance: BEXAROTENE
     Dosage: 2 WEEK ON, 2 WEEK OFF CYCLE
     Route: 048
     Dates: start: 2018, end: 201812
  3. TARGRETIN [Suspect]
     Active Substance: BEXAROTENE
     Indication: MYCOSIS FUNGOIDES
     Route: 048
     Dates: start: 20180425, end: 20180501
  4. TARGRETIN [Suspect]
     Active Substance: BEXAROTENE
     Dosage: 2 WEEK ON, 2 WEEK OFF CYCLE
     Route: 048
     Dates: start: 20190116

REACTIONS (4)
  - Death [Fatal]
  - Hypertriglyceridaemia [Not Recovered/Not Resolved]
  - White blood cell count decreased [Not Recovered/Not Resolved]
  - Dizziness [Unknown]

NARRATIVE: CASE EVENT DATE: 2018
